FAERS Safety Report 17110966 (Version 3)
Quarter: 2019Q4

REPORT INFORMATION
  Report Type: Spontaneous
  Country: US (occurrence: US)
  Receive Date: 20191204
  Receipt Date: 20191220
  Transmission Date: 20200122
  Serious: No
  Sender: FDA-Public Use
  Company Number: US-PFIZER INC-2019522542

PATIENT
  Age: 67 Year
  Sex: Male

DRUGS (3)
  1. INLYTA [Suspect]
     Active Substance: AXITINIB
     Indication: METASTASES TO LUNG
     Dosage: 5 MG, 2X/DAY
  2. INLYTA [Suspect]
     Active Substance: AXITINIB
     Dosage: 5 MG, UNK
  3. INLYTA [Suspect]
     Active Substance: AXITINIB
     Dosage: 10 MG, UNK

REACTIONS (1)
  - Neoplasm progression [Unknown]
